FAERS Safety Report 24463267 (Version 1)
Quarter: 2024Q4

REPORT INFORMATION
  Report Type: Report from Study
  Country: US (occurrence: US)
  Receive Date: 20241018
  Receipt Date: 20241018
  Transmission Date: 20250115
  Serious: No
  Sender: ROCHE
  Company Number: US-ROCHE-2746889

PATIENT
  Age: 75 Year
  Sex: Male

DRUGS (15)
  1. XOLAIR [Suspect]
     Active Substance: OMALIZUMAB
     Indication: Idiopathic urticaria
     Dosage: INJECT 300 MG DOSE EVERY 4 WEEKS, DOSE STRENGTH: 150 MG/ML
     Route: 058
  2. XOLAIR [Suspect]
     Active Substance: OMALIZUMAB
     Dosage: INJECT 300 MG SUBCUTANEOUSLY EVERY 2 WEEKS, LAST INJECTION DATE: 15/FEB/2018, 05/JAN/2021
     Route: 058
  3. LEVOCETIRIZINE [Concomitant]
     Active Substance: LEVOCETIRIZINE
  4. AZELASTINE [Concomitant]
     Active Substance: AZELASTINE
     Dosage: 1-2 SPRAYS IN EACH NOSTRIL ONCE - TWICE A DAY
  5. EPINEPHRINE [Concomitant]
     Active Substance: EPINEPHRINE
  6. ASPIRIN [Concomitant]
     Active Substance: ASPIRIN
     Route: 048
  7. FLUTICASONE PROPIONATE [Concomitant]
     Active Substance: FLUTICASONE PROPIONATE
  8. ALLEGRA [Concomitant]
     Active Substance: FEXOFENADINE HYDROCHLORIDE
     Dosage: ONE TABLET ORAL BID
     Route: 048
  9. CAPSAICIN [Concomitant]
     Active Substance: CAPSAICIN
     Dosage: APPLY TO AFFECTED AREA TWICE A DAY TO AREA OF ITCHING
  10. FLOMAX [Concomitant]
     Active Substance: TAMSULOSIN HYDROCHLORIDE
     Dosage: ONE CAPSULE BID
  11. CYMBALTA [Concomitant]
     Active Substance: DULOXETINE HYDROCHLORIDE
     Dosage: TAKE 1 BY MOUTH DAILY
  12. FENOFIBRATE [Concomitant]
     Active Substance: FENOFIBRATE
     Dosage: TAKE 1 TABLET BY MOUTH BEFORE MEAL
     Route: 048
  13. CELLCEPT [Concomitant]
     Active Substance: MYCOPHENOLATE MOFETIL
  14. DESLORATADINE [Concomitant]
     Active Substance: DESLORATADINE
  15. FAMOTIDINE [Concomitant]
     Active Substance: FAMOTIDINE

REACTIONS (3)
  - Off label use [Unknown]
  - Urticaria [Unknown]
  - Hypoacusis [Not Recovered/Not Resolved]
